FAERS Safety Report 5252664-0 (Version None)
Quarter: 2007Q1

REPORT INFORMATION
  Report Type: 
  Country: None (occurrence: None)
  Receive Date: 20070301
  Receipt Date: 20061103
  Transmission Date: 20070707
  Serious: No
  Sender: FDA-Public Use
  Company Number: US-GLAXOSMITHKLINE-A0626188A

PATIENT
  Age: 46 Year
  Sex: Female

DRUGS (12)
  1. LAMICTAL [Suspect]
     Indication: DRUG USE FOR UNKNOWN INDICATION
     Dosage: 50MG PER DAY
     Route: 048
     Dates: start: 20061014, end: 20061102
  2. SYNTHROID [Concomitant]
  3. PREVACID [Concomitant]
  4. EFFEXOR XR [Concomitant]
  5. MOBIC [Concomitant]
  6. LEXAPRO [Concomitant]
  7. PROPOXYPHENE HYDROCHLORIDE [Concomitant]
  8. UNSPECIFIED MEDICATION [Concomitant]
  9. TRAZODONE HCL [Concomitant]
  10. ZYRTEC [Concomitant]
  11. BIRTH CONTROL PILL [Concomitant]
  12. XANAX [Concomitant]

REACTIONS (6)
  - DRY SKIN [None]
  - DYSPNOEA [None]
  - PANIC ATTACK [None]
  - PRURITUS [None]
  - RASH [None]
  - URTICARIA [None]
